FAERS Safety Report 8856672 (Version 1)
Quarter: 2012Q4

REPORT INFORMATION
  Report Type: Spontaneous
  Country: US (occurrence: None)
  Receive Date: 20121019
  Receipt Date: 20121019
  Transmission Date: 20130627
  Serious: Yes (Other)
  Sender: FDA-Public Use
  Company Number: DSA_60246_2012

PATIENT
  Age: 91 Year
  Sex: Female

DRUGS (1)
  1. XENAZINE (NOT SPECIFIED) [Suspect]
     Indication: DYSKINESIA
     Route: 048
     Dates: start: 20120509

REACTIONS (3)
  - Movement disorder [None]
  - Memory impairment [None]
  - Restlessness [None]
